FAERS Safety Report 11054871 (Version 2)
Quarter: 2015Q2

REPORT INFORMATION
  Report Type: Spontaneous
  Country: CH (occurrence: None)
  Receive Date: 20150420
  Receipt Date: 20150629
  Transmission Date: 20150821
  Serious: Yes (Hospitalization, Other)
  Sender: FDA-Public Use
  Company Number: ADR-2015-00735

PATIENT
  Age: 58 Year
  Sex: Male

DRUGS (20)
  1. ALFUZOSIN [Suspect]
     Active Substance: ALFUZOSIN
     Indication: BENIGN PROSTATIC HYPERPLASIA
  2. TROSPIUM [Suspect]
     Active Substance: TROSPIUM
     Indication: URINARY INCONTINENCE
  3. METFORMIN [Suspect]
     Active Substance: METFORMIN HYDROCHLORIDE
     Indication: TYPE 2 DIABETES MELLITUS
  4. CANNABIS [Suspect]
     Active Substance: CANNABIS SATIVA SUBSP. INDICA TOP
  5. ALCOHOL (ETHANOL) [Suspect]
     Active Substance: ALCOHOL
  6. ESCITALOPRAM [Suspect]
     Active Substance: ESCITALOPRAM OXALATE
  7. OXAZEPAM. [Suspect]
     Active Substance: OXAZEPAM
  8. IBUPROFEN. [Suspect]
     Active Substance: IBUPROFEN
     Indication: INTERVERTEBRAL DISC PROTRUSION
  9. QUETIAPINE [Suspect]
     Active Substance: QUETIAPINE
  10. ATORVASTATIN [Suspect]
     Active Substance: ATORVASTATIN
     Indication: DYSLIPIDAEMIA
  11. ACETAMINOPHEN. [Suspect]
     Active Substance: ACETAMINOPHEN
     Indication: INTERVERTEBRAL DISC PROTRUSION
  12. ACETAMINOPHEN. [Suspect]
     Active Substance: ACETAMINOPHEN
     Indication: BACK PAIN
  13. TRIAMCINOLONE [Suspect]
     Active Substance: TRIAMCINOLONE
     Indication: INTERVERTEBRAL DISC PROTRUSION
     Route: 030
  14. BACLOFEN. [Suspect]
     Active Substance: BACLOFEN
     Indication: ALCOHOLISM
     Route: 048
     Dates: start: 201110, end: 201203
  15. TRAMADOL [Suspect]
     Active Substance: TRAMADOL
     Indication: PAIN
  16. TRIAMCINOLONE [Suspect]
     Active Substance: TRIAMCINOLONE
     Indication: BACK PAIN
     Route: 030
  17. ALPRAZOLAM. [Suspect]
     Active Substance: ALPRAZOLAM
  18. ZOLPIDEM [Suspect]
     Active Substance: ZOLPIDEM\ZOLPIDEM TARTRATE
  19. CANDESARTAN [Suspect]
     Active Substance: CANDESARTAN
     Indication: HYPERTENSION
  20. IBUPROFEN. [Suspect]
     Active Substance: IBUPROFEN
     Indication: BACK PAIN

REACTIONS (14)
  - Negativism [None]
  - Theft [None]
  - Disinhibition [None]
  - Legal problem [None]
  - Alcohol abuse [None]
  - Grandiosity [None]
  - Psychomotor hyperactivity [None]
  - Aggression [None]
  - Impulsive behaviour [None]
  - Mania [None]
  - Weight decreased [None]
  - Drug abuse [None]
  - Euphoric mood [None]
  - Irritability [None]

NARRATIVE: CASE EVENT DATE: 20150401
